FAERS Safety Report 21790804 (Version 1)
Quarter: 2022Q4

REPORT INFORMATION
  Report Type: Spontaneous
  Country: US (occurrence: None)
  Receive Date: 20221227
  Receipt Date: 20221227
  Transmission Date: 20230113
  Serious: No
  Sender: FDA-Public Use
  Company Number: None

PATIENT
  Age: 86 Year
  Sex: Male

DRUGS (1)
  1. COSENTYX [Suspect]
     Active Substance: SECUKINUMAB
     Dosage: OTHER FREQUENCY : OTHER;?
     Route: 058

REACTIONS (5)
  - Urinary tract infection [None]
  - Dysarthria [None]
  - Delusion [None]
  - Tremor [None]
  - Pseudomonas infection [None]

NARRATIVE: CASE EVENT DATE: 20221213
